FAERS Safety Report 22020802 (Version 6)
Quarter: 2023Q2

REPORT INFORMATION
  Report Type: Report from Study
  Country: US (occurrence: US)
  Receive Date: 20230222
  Receipt Date: 20230510
  Transmission Date: 20230722
  Serious: No
  Sender: FDA-Public Use
  Company Number: US-002147023-NVSC2023US041090

PATIENT
  Sex: Female

DRUGS (2)
  1. PIQRAY [Suspect]
     Active Substance: ALPELISIB
     Indication: Product used for unknown indication
     Dosage: UNK
     Route: 048
  2. KISQALI [Suspect]
     Active Substance: RIBOCICLIB
     Indication: Product used for unknown indication
     Dosage: UNK
     Route: 065
     Dates: start: 20230305

REACTIONS (12)
  - Pleural effusion [Unknown]
  - Back pain [Unknown]
  - Neck pain [Unknown]
  - Muscular weakness [Unknown]
  - Blood urea increased [Unknown]
  - Constipation [Unknown]
  - Depression [Unknown]
  - Cough [Unknown]
  - Headache [Unknown]
  - Asthenia [Unknown]
  - Fatigue [Unknown]
  - Drug ineffective [Unknown]
